FAERS Safety Report 5391812-9 (Version None)
Quarter: 2007Q3

REPORT INFORMATION
  Report Type: 
  Country: None (occurrence: None)
  Receive Date: 20070718
  Receipt Date: 20070703
  Transmission Date: 20080115
  Serious: Yes (Hospitalization)
  Sender: FDA-Public Use
  Company Number: SPV1-2007-03531

PATIENT
  Age: 8 Year
  Sex: Female

DRUGS (3)
  1. ADDERALL XR 10 [Suspect]
     Indication: ATTENTION DEFICIT/HYPERACTIVITY DISORDER
     Dosage: 20 MG, 2X/DAY/BID
     Dates: start: 20040801, end: 20070531
  2. STRATTERA [Concomitant]
  3. CLONIDINE [Concomitant]

REACTIONS (3)
  - FALL [None]
  - OVERDOSE [None]
  - UPPER LIMB FRACTURE [None]
